FAERS Safety Report 23988493 (Version 2)
Quarter: 2024Q2

REPORT INFORMATION
  Report Type: Report from Study
  Country: DE (occurrence: DE)
  Receive Date: 20240619
  Receipt Date: 20240626
  Transmission Date: 20240716
  Serious: Yes (Hospitalization)
  Sender: FDA-Public Use
  Company Number: DE-KYOWAKIRIN-2024KK014530

PATIENT

DRUGS (74)
  1. MOGAMULIZUMAB [Suspect]
     Active Substance: MOGAMULIZUMAB
     Indication: Cutaneous T-cell lymphoma
     Dosage: 50 MG (1.0 MG/KG, CYCLE 1 DAY 1)
     Route: 065
     Dates: start: 20240103
  2. MOGAMULIZUMAB [Suspect]
     Active Substance: MOGAMULIZUMAB
     Dosage: 100 MG (1.0 MG/KG, CYCLE 1 DAY 8)
     Route: 065
     Dates: start: 20240110
  3. MOGAMULIZUMAB [Suspect]
     Active Substance: MOGAMULIZUMAB
     Dosage: 100 MG (1 MG/KG, CYCLE 1 DAY 15)
     Route: 065
     Dates: start: 20240118
  4. MOGAMULIZUMAB [Suspect]
     Active Substance: MOGAMULIZUMAB
     Dosage: 100 MG (1 MG/KG, CYCLE 1 DAY 22)
     Route: 065
     Dates: start: 20240125
  5. MOGAMULIZUMAB [Suspect]
     Active Substance: MOGAMULIZUMAB
     Dosage: 101 MG (1 MG/KG, CYCLE 2 DAY 1)
     Route: 065
     Dates: start: 20240201
  6. MOGAMULIZUMAB [Suspect]
     Active Substance: MOGAMULIZUMAB
     Dosage: 103 MG (1 MG/KG, CYCLE 2 DAY 15)
     Route: 065
     Dates: start: 20240214
  7. MOGAMULIZUMAB [Suspect]
     Active Substance: MOGAMULIZUMAB
     Dosage: 102 MG (1 MG/KG, CYCLE 3 DAY 1)
     Route: 065
     Dates: start: 20240228
  8. MOGAMULIZUMAB [Suspect]
     Active Substance: MOGAMULIZUMAB
     Dosage: 102 MG (1 MG/KG, CYCLE 3 DAY 15)
     Route: 065
     Dates: start: 20240313
  9. MOGAMULIZUMAB [Suspect]
     Active Substance: MOGAMULIZUMAB
     Dosage: 99 MG (1 MG/KG, CYCLE 4 DAY 1)
     Route: 065
     Dates: start: 20240328
  10. MOGAMULIZUMAB [Suspect]
     Active Substance: MOGAMULIZUMAB
     Dosage: 0 MG (1 MG/KG, CYCLE 4 DAY 15)
     Route: 065
     Dates: start: 20240424
  11. MOGAMULIZUMAB [Suspect]
     Active Substance: MOGAMULIZUMAB
     Dosage: 100 MG (1 MG/KG, CYCLE 5 DAY 1)
     Route: 065
     Dates: start: 20240515
  12. MOGAMULIZUMAB [Suspect]
     Active Substance: MOGAMULIZUMAB
     Dosage: 0 MG (1 MG/KG, CYCLE 5 DAY 15)
     Route: 065
     Dates: start: 20240612
  13. MOGAMULIZUMAB [Suspect]
     Active Substance: MOGAMULIZUMAB
     Dosage: 0 MG (1 MG/KG, CYCLE 6 DAY 1)
     Route: 065
  14. CARVEDILOL [Concomitant]
     Active Substance: CARVEDILOL
     Indication: Product used for unknown indication
     Dosage: 12.5 MG, QD
     Route: 065
  15. LERCANIDIPINE [Concomitant]
     Active Substance: LERCANIDIPINE
     Indication: Product used for unknown indication
     Dosage: 20 MG, QD
     Route: 065
  16. IRBESARTAN [Concomitant]
     Active Substance: IRBESARTAN
     Indication: Product used for unknown indication
     Dosage: 150 MG, QD
     Route: 065
  17. EMPAGLIFLOZIN [Concomitant]
     Active Substance: EMPAGLIFLOZIN
     Indication: Product used for unknown indication
     Dosage: 10 MG, QD
     Route: 065
  18. HYDROCHLOROTHIAZIDE [Concomitant]
     Active Substance: HYDROCHLOROTHIAZIDE
     Indication: Product used for unknown indication
     Dosage: 25 MG, QD
     Route: 065
  19. ASPIRIN [Concomitant]
     Active Substance: ASPIRIN
     Indication: Prophylaxis
     Dosage: 100 MG, QD
     Route: 065
  20. CLOBETASOL PROPIONATE [Concomitant]
     Active Substance: CLOBETASOL PROPIONATE
     Indication: Cutaneous T-cell lymphoma
     Dosage: UNK, BID
     Route: 065
     Dates: start: 20240103, end: 20240111
  21. PREDNICARBATE [Concomitant]
     Active Substance: PREDNICARBATE
     Indication: Cutaneous T-cell lymphoma
     Dosage: UNK, BID
     Route: 065
     Dates: start: 20240103, end: 20240111
  22. PREDNICARBATE [Concomitant]
     Active Substance: PREDNICARBATE
     Dosage: UNK, BID
     Route: 065
     Dates: start: 20240125, end: 20240130
  23. PREDNICARBATE [Concomitant]
     Active Substance: PREDNICARBATE
     Dosage: UNK UNK, QD
     Route: 065
     Dates: start: 20240130, end: 20240228
  24. PREDNICARBATE [Concomitant]
     Active Substance: PREDNICARBATE
     Dosage: UNK, BID
     Route: 065
     Dates: start: 20240321, end: 20240328
  25. PREDNICARBATE [Concomitant]
     Active Substance: PREDNICARBATE
     Dosage: UNK, PRN
     Route: 065
     Dates: start: 20240619
  26. DIMETHINDENE [Concomitant]
     Active Substance: DIMETHINDENE
     Indication: Product used for unknown indication
     Dosage: 4 MG ONCE
     Route: 065
     Dates: start: 20240103, end: 20240103
  27. PREDNISOLONE SODIUM SUCCINATE [Concomitant]
     Active Substance: PREDNISOLONE SODIUM SUCCINATE
     Indication: Product used for unknown indication
     Dosage: 250 MG ONCE
     Route: 065
     Dates: start: 20240103, end: 20240103
  28. ACETAMINOPHEN [Concomitant]
     Active Substance: ACETAMINOPHEN
     Indication: Product used for unknown indication
     Dosage: 500 MG ONCE
     Route: 065
     Dates: start: 20240103, end: 20240103
  29. ACETAMINOPHEN [Concomitant]
     Active Substance: ACETAMINOPHEN
     Indication: Prophylaxis
     Dosage: 1000 MG ONCE
     Route: 065
     Dates: start: 20240103, end: 20240103
  30. ACETAMINOPHEN [Concomitant]
     Active Substance: ACETAMINOPHEN
     Dosage: 1000 MG ONCE
     Route: 065
     Dates: start: 20240110, end: 20240110
  31. ACETAMINOPHEN [Concomitant]
     Active Substance: ACETAMINOPHEN
     Dosage: 1000 MG ONCE
     Route: 065
     Dates: start: 20240118, end: 20240118
  32. ACETAMINOPHEN [Concomitant]
     Active Substance: ACETAMINOPHEN
     Dosage: 1000 MG ONCE
     Route: 065
     Dates: start: 20240125, end: 20240125
  33. ACETAMINOPHEN [Concomitant]
     Active Substance: ACETAMINOPHEN
     Dosage: 1000 MG ONCE
     Route: 065
     Dates: start: 20240201, end: 20240201
  34. ACETAMINOPHEN [Concomitant]
     Active Substance: ACETAMINOPHEN
     Dosage: 1000 MG ONCE
     Route: 065
     Dates: start: 20240214, end: 20240214
  35. ACETAMINOPHEN [Concomitant]
     Active Substance: ACETAMINOPHEN
     Dosage: 1000 MG ONCE
     Route: 065
     Dates: start: 20240228, end: 20240228
  36. ACETAMINOPHEN [Concomitant]
     Active Substance: ACETAMINOPHEN
     Dosage: 1000 MG ONCE
     Route: 065
     Dates: start: 20240328, end: 20240328
  37. ACETAMINOPHEN [Concomitant]
     Active Substance: ACETAMINOPHEN
     Dosage: 1000 MG ONCE
     Route: 065
     Dates: start: 20240515, end: 20240515
  38. PREDNISOLONE [Concomitant]
     Active Substance: PREDNISOLONE
     Indication: Prophylaxis
     Dosage: 250 MG ONCE
     Route: 065
     Dates: start: 20240110, end: 20240110
  39. PREDNISOLONE [Concomitant]
     Active Substance: PREDNISOLONE
     Dosage: 100 MG ONCE
     Route: 065
     Dates: start: 20240118, end: 20240118
  40. PREDNISOLONE [Concomitant]
     Active Substance: PREDNISOLONE
     Dosage: 50 MG, QD
     Route: 065
     Dates: start: 20240614
  41. PREDNISOLONE [Concomitant]
     Active Substance: PREDNISOLONE
     Dosage: 30 MG, QD
     Route: 065
     Dates: start: 20240620
  42. SULFAMETHOXAZOLE\TRIMETHOPRIM [Concomitant]
     Active Substance: SULFAMETHOXAZOLE\TRIMETHOPRIM
     Indication: Prophylaxis
     Dosage: 960 MG, 3X/WEEK
     Route: 065
     Dates: start: 20240119, end: 20240228
  43. SULFAMETHOXAZOLE\TRIMETHOPRIM [Concomitant]
     Active Substance: SULFAMETHOXAZOLE\TRIMETHOPRIM
     Dosage: 960 MG, 3X/WEEK
     Route: 065
     Dates: start: 20240515, end: 20240612
  44. ACYCLOVIR [Concomitant]
     Active Substance: ACYCLOVIR
     Indication: Prophylaxis
     Dosage: 800 MG, BID
     Route: 065
     Dates: start: 20240119, end: 20240228
  45. ACYCLOVIR [Concomitant]
     Active Substance: ACYCLOVIR
     Dosage: 400 MG, BID
     Route: 065
     Dates: start: 20240229
  46. ACYCLOVIR [Concomitant]
     Active Substance: ACYCLOVIR
     Dosage: 400 MG, BID
     Route: 065
     Dates: start: 20240515
  47. MOMETASONE FUROATE [Concomitant]
     Active Substance: MOMETASONE FUROATE
     Indication: Cutaneous T-cell lymphoma
     Dosage: UNK, PRN
     Route: 065
     Dates: start: 20240112, end: 20240321
  48. MOMETASONE FUROATE [Concomitant]
     Active Substance: MOMETASONE FUROATE
     Dosage: UNK, PRN
     Route: 065
     Dates: start: 20240329, end: 20240424
  49. ENOXAPARIN [Concomitant]
     Active Substance: ENOXAPARIN
     Indication: Prophylaxis
     Dosage: 0.4 MG, QD
     Route: 065
     Dates: start: 20240103, end: 20240111
  50. ENOXAPARIN [Concomitant]
     Active Substance: ENOXAPARIN
     Dosage: 0.4 MG, QD
     Route: 065
     Dates: start: 20240321, end: 20240328
  51. ENOXAPARIN [Concomitant]
     Active Substance: ENOXAPARIN
     Dosage: 0.4 MG, QD
     Route: 065
     Dates: start: 20240612, end: 20240618
  52. DESLORATADINE [Concomitant]
     Active Substance: DESLORATADINE
     Indication: Cutaneous T-cell lymphoma
     Dosage: 5 MG, 4 X PER DAY
     Route: 065
     Dates: start: 20240103, end: 20240111
  53. DESLORATADINE [Concomitant]
     Active Substance: DESLORATADINE
     Dosage: 5 MG, PRN
     Route: 065
     Dates: start: 20240112
  54. DESLORATADINE [Concomitant]
     Active Substance: DESLORATADINE
     Dosage: 5 MG, 4 X PER DAY
     Route: 065
     Dates: start: 20240321, end: 20240328
  55. DESLORATADINE [Concomitant]
     Active Substance: DESLORATADINE
     Dosage: 5 MG, TID
     Route: 065
     Dates: start: 20240612, end: 20240618
  56. DESLORATADINE [Concomitant]
     Active Substance: DESLORATADINE
     Dosage: 5 MG, PRN
     Route: 065
     Dates: start: 20240618
  57. BETAMETHASONE SODIUM PHOSPHATE [Concomitant]
     Active Substance: BETAMETHASONE SODIUM PHOSPHATE
     Indication: Cutaneous T-cell lymphoma
     Dosage: UNK, PRN (LOTION)
     Route: 065
     Dates: start: 20240125, end: 20240228
  58. CLEMASTINE [Concomitant]
     Active Substance: CLEMASTINE
     Indication: Prophylaxis
     Dosage: 2 MG, ONCE
     Route: 065
     Dates: start: 20240103, end: 20240103
  59. CLEMASTINE [Concomitant]
     Active Substance: CLEMASTINE
     Dosage: 2 MG, ONCE
     Route: 065
     Dates: start: 20240110, end: 20240110
  60. CLEMASTINE [Concomitant]
     Active Substance: CLEMASTINE
     Dosage: 2 MG, ONCE
     Route: 065
     Dates: start: 20240118, end: 20240118
  61. CLEMASTINE [Concomitant]
     Active Substance: CLEMASTINE
     Dosage: 2 MG, ONCE
     Route: 065
     Dates: start: 20240125, end: 20240125
  62. CLEMASTINE [Concomitant]
     Active Substance: CLEMASTINE
     Dosage: 2 MG, ONCE
     Route: 065
     Dates: start: 20240201, end: 20240201
  63. CLEMASTINE [Concomitant]
     Active Substance: CLEMASTINE
     Dosage: 2 MG, ONCE
     Route: 065
     Dates: start: 20240214, end: 20240214
  64. CLEMASTINE [Concomitant]
     Active Substance: CLEMASTINE
     Dosage: 2 MG, ONCE
     Route: 065
     Dates: start: 20240228, end: 20240228
  65. CLEMASTINE [Concomitant]
     Active Substance: CLEMASTINE
     Dosage: 2 MG, ONCE
     Route: 065
     Dates: start: 20240328, end: 20240328
  66. CLEMASTINE [Concomitant]
     Active Substance: CLEMASTINE
     Dosage: 2 MG, ONCE
     Route: 065
     Dates: start: 20240515, end: 20240515
  67. IBUPROFEN [Concomitant]
     Active Substance: IBUPROFEN
     Indication: Product used for unknown indication
     Dosage: UNK, PRN
     Route: 065
  68. CLOBETASOL [Concomitant]
     Active Substance: CLOBETASOL
     Indication: Cutaneous T-cell lymphoma
     Dosage: UNK, BID (SALVE)
     Route: 065
     Dates: start: 20240321, end: 20240328
  69. CLOBETASOL [Concomitant]
     Active Substance: CLOBETASOL
     Dosage: UNK, BID (SALVE)
     Route: 065
     Dates: start: 20240424, end: 20240508
  70. CLOBETASOL [Concomitant]
     Active Substance: CLOBETASOL
     Dosage: UNK, PRN (SALVE)
     Route: 065
     Dates: start: 20240509, end: 20240612
  71. CLOBETASOL [Concomitant]
     Active Substance: CLOBETASOL
     Dosage: UNK, BID (SALVE)
     Route: 065
     Dates: start: 20240612, end: 20240618
  72. BETAMETHASONE [Concomitant]
     Active Substance: BETAMETHASONE\BETAMETHASONE DIPROPIONATE
     Indication: Product used for unknown indication
     Dosage: UNK, BID (LOTION)
     Route: 065
     Dates: start: 20240612, end: 20240618
  73. INSULIN HUMAN [Concomitant]
     Active Substance: INSULIN HUMAN
     Indication: Product used for unknown indication
     Dosage: UNK, PRN
     Route: 065
     Dates: start: 20240614, end: 20240618
  74. MOMETASONE FUROATE [Concomitant]
     Active Substance: MOMETASONE FUROATE
     Indication: Product used for unknown indication
     Dosage: UNK, PRN
     Route: 065
     Dates: start: 20240619

REACTIONS (2)
  - Condition aggravated [Not Recovered/Not Resolved]
  - Drug eruption [Not Recovered/Not Resolved]

NARRATIVE: CASE EVENT DATE: 20240612
